FAERS Safety Report 8419786-4 (Version None)
Quarter: 2012Q2

REPORT INFORMATION
  Report Type: 
  Country: None (occurrence: None)
  Receive Date: 20120607
  Receipt Date: 20120606
  Transmission Date: 20120825
  Serious: Yes (Death, Hospitalization)
  Sender: FDA-Public Use
  Company Number: PHHY2012BR026163

PATIENT
  Age: 41 Year
  Sex: Female

DRUGS (1)
  1. PROCAINAMIDE [Suspect]
     Indication: VENTRICULAR TACHYCARDIA
     Dosage: 1 G, UNK
     Route: 042

REACTIONS (3)
  - DRUG INEFFECTIVE [None]
  - VENTRICULAR TACHYCARDIA [None]
  - SUDDEN CARDIAC DEATH [None]
